FAERS Safety Report 13932459 (Version 5)
Quarter: 2018Q2

REPORT INFORMATION
  Report Type: Spontaneous
  Country: US (occurrence: US)
  Receive Date: 20170904
  Receipt Date: 20180605
  Transmission Date: 20180711
  Serious: Yes (Other)
  Sender: FDA-Public Use
  Company Number: US-CELGENEUS-USA-20170809359

PATIENT
  Age: 84 Year
  Sex: Female
  Weight: 59.02 kg

DRUGS (6)
  1. REVLIMID [Suspect]
     Active Substance: LENALIDOMIDE
     Dosage: 5 MILLIGRAM
     Route: 048
     Dates: start: 201609
  2. REVLIMID [Suspect]
     Active Substance: LENALIDOMIDE
     Dosage: 5 MILLIGRAM
     Route: 048
     Dates: start: 201304
  3. REVLIMID [Suspect]
     Active Substance: LENALIDOMIDE
     Dosage: 25 MILLIGRAM
     Route: 048
     Dates: start: 201608
  4. REVLIMID [Suspect]
     Active Substance: LENALIDOMIDE
     Dosage: 5 MILLIGRAM
     Route: 048
  5. REVLIMID [Suspect]
     Active Substance: LENALIDOMIDE
     Indication: PLASMA CELL MYELOMA
     Dosage: 5 MILLIGRAM
     Route: 048
     Dates: start: 201301
  6. REVLIMID [Suspect]
     Active Substance: LENALIDOMIDE
     Dosage: 2.5 TO 5MG
     Route: 048
     Dates: start: 201305

REACTIONS (10)
  - Loss of consciousness [Not Recovered/Not Resolved]
  - Malaise [Unknown]
  - Fall [Not Recovered/Not Resolved]
  - Dizziness [Not Recovered/Not Resolved]
  - Swelling [Not Recovered/Not Resolved]
  - Musculoskeletal pain [Unknown]
  - Feeling abnormal [Not Recovered/Not Resolved]
  - Memory impairment [Not Recovered/Not Resolved]
  - Drug dose omission [Unknown]
  - Musculoskeletal stiffness [Unknown]

NARRATIVE: CASE EVENT DATE: 201708
